FAERS Safety Report 19435627 (Version 1)
Quarter: 2021Q2

REPORT INFORMATION
  Report Type: Report from Study
  Country: JP (occurrence: JP)
  Receive Date: 20210618
  Receipt Date: 20210618
  Transmission Date: 20210717
  Serious: Yes (Death, Life-Threatening, Other)
  Sender: FDA-Public Use
  Company Number: JP-JNJFOC-20210632590

PATIENT
  Age: 81 Year
  Sex: Female
  Weight: 48 kg

DRUGS (7)
  1. ENVIOMYCIN SULFATE [Concomitant]
     Active Substance: ENVIOMYCIN SULFATE
     Indication: PULMONARY TUBERCULOSIS
     Dosage: UNKNOWN
     Route: 030
  2. CLOFAZIMINE [Concomitant]
     Active Substance: CLOFAZIMINE
     Indication: PULMONARY TUBERCULOSIS
     Dosage: UNKNOWN
     Route: 048
  3. SIRTURO [Suspect]
     Active Substance: BEDAQUILINE FUMARATE
     Indication: PULMONARY TUBERCULOSIS
     Route: 048
     Dates: start: 20190911, end: 2019
  4. SIRTURO [Suspect]
     Active Substance: BEDAQUILINE FUMARATE
     Indication: PULMONARY TUBERCULOSIS
     Route: 048
     Dates: start: 2019, end: 20191001
  5. DELAMANID [Suspect]
     Active Substance: DELAMANID
     Indication: PULMONARY TUBERCULOSIS
     Dosage: DOSE UNKNOWN
     Route: 048
     Dates: start: 20190911, end: 20190919
  6. CYCLOSERINE. [Concomitant]
     Active Substance: CYCLOSERINE
     Indication: PULMONARY TUBERCULOSIS
     Dosage: UNKNOWN
     Route: 048
  7. DELAMANID [Suspect]
     Active Substance: DELAMANID
     Indication: PULMONARY TUBERCULOSIS
     Dosage: DOSE UNKNOWN
     Route: 048
     Dates: end: 20210104

REACTIONS (2)
  - Electrocardiogram QT prolonged [Recovered/Resolved]
  - Marasmus [Fatal]

NARRATIVE: CASE EVENT DATE: 20190919
